FAERS Safety Report 16579693 (Version 1)
Quarter: 2019Q3

REPORT INFORMATION
  Report Type: Spontaneous
  Country: SI (occurrence: SI)
  Receive Date: 20190716
  Receipt Date: 20190716
  Transmission Date: 20191004
  Serious: Yes (Death, Life-Threatening, Hospitalization)
  Sender: FDA-Public Use
  Company Number: SI-BAYER-2019-129377

PATIENT
  Age: 45 Year
  Sex: Female

DRUGS (15)
  1. MEDROL [Concomitant]
     Active Substance: METHYLPREDNISOLONE
     Dosage: 4 MG/24HR, UNK
  2. DORETA [Concomitant]
     Active Substance: ACETAMINOPHEN\TRAMADOL HYDROCHLORIDE
     Dosage: UNK
  3. ALDACTONE [POTASSIUM CANRENOATE] [Concomitant]
     Active Substance: CANRENOATE POTASSIUM
     Dosage: 50 MG, BID
  4. EUTHYROX [Concomitant]
     Active Substance: LEVOTHYROXINE SODIUM
     Dosage: 75 MCG/24HR, UNK
  5. ADEMPAS [Suspect]
     Active Substance: RIOCIGUAT
     Indication: PULMONARY HYPERTENSION
     Dosage: 1 DF, Q8HR
     Route: 048
     Dates: start: 20170503, end: 20181204
  6. NOLPAZA [Concomitant]
     Active Substance: PANTOPRAZOLE SODIUM
     Dosage: 20 MG, BID
  7. MAGNESIUM [Concomitant]
     Active Substance: MAGNESIUM
     Dosage: 1 DF, OM
  8. KALINOR [POTASSIUM BICARBONATE;POTASSIUM CITRATE] [Concomitant]
     Dosage: 1 DF, QOD
  9. EDEMID [Concomitant]
     Active Substance: FUROSEMIDE
     Dosage: 500 MG, BID
  10. SINTROM [Concomitant]
     Active Substance: ACENOCOUMAROL
  11. ALPHA D3 [Concomitant]
     Active Substance: ALFACALCIDOL
     Dosage: 1 MCG/24HR, UNK
  12. ALOPURINOL [Concomitant]
     Active Substance: ALLOPURINOL
     Dosage: 100 MG/24HR, UNK
  13. VOLIBRIS [Concomitant]
     Active Substance: AMBRISENTAN
     Dosage: 5 MG/24HR, UNK
  14. CONCOR [Concomitant]
     Active Substance: BISOPROLOL FUMARATE
     Dosage: 2.5 MG, BID
  15. TAVANIC [Concomitant]
     Active Substance: LEVOFLOXACIN
     Dosage: 500 MG, UNK

REACTIONS (4)
  - Acute kidney injury [Recovered/Resolved with Sequelae]
  - Generalised oedema [None]
  - Right ventricular failure [None]
  - Acute kidney injury [Fatal]

NARRATIVE: CASE EVENT DATE: 20181204
